FAERS Safety Report 9830746 (Version 3)
Quarter: 2014Q4

REPORT INFORMATION
  Report Type: Report from Study
  Country: US (occurrence: US)
  Receive Date: 20140120
  Receipt Date: 20141009
  Transmission Date: 20150529
  Serious: Yes (Death)
  Sender: FDA-Public Use
  Company Number: US-MPIJNJ-2014MPI000148

PATIENT
  Age: 78 Year
  Sex: Male
  Weight: 91.16 kg

DRUGS (1)
  1. VELCADE [Suspect]
     Active Substance: BORTEZOMIB
     Indication: PLASMA CELL MYELOMA
     Dosage: 1.5 MG/M2, 1/WEEK
     Route: 058
     Dates: start: 20130820, end: 20131204

REACTIONS (1)
  - Death [Fatal]

NARRATIVE: CASE EVENT DATE: 20131211
